FAERS Safety Report 16397448 (Version 3)
Quarter: 2020Q1

REPORT INFORMATION
  Report Type: Report from Study
  Country: JP (occurrence: JP)
  Receive Date: 20190606
  Receipt Date: 20200227
  Transmission Date: 20200409
  Serious: Yes (Death, Other)
  Sender: FDA-Public Use
  Company Number: JP-TEVA-2019-JP-1057867

PATIENT
  Age: 77 Year
  Sex: Male
  Weight: 67.1 kg

DRUGS (86)
  1. SALIVEHT AEROSOL (SPRAY AND INHALATION) [Concomitant]
     Indication: PNEUMONIA
     Dates: start: 20170123, end: 20170123
  2. GOREISAN POWDER (EXCEPT [DPO]) [Concomitant]
     Indication: PNEUMONIA
     Dates: start: 20170123, end: 20170205
  3. URSODEOXYCHOLIC ACID [Concomitant]
     Active Substance: URSODIOL
     Indication: PROPHYLAXIS
     Dates: start: 20170208, end: 20170604
  4. SENNOSIDE [Concomitant]
     Active Substance: SENNOSIDES
     Indication: OEDEMA
     Dates: start: 20170316, end: 20170320
  5. FILGRASTIM BS INJ. 150MCG SYRINGE [Suspect]
     Active Substance: FILGRASTIM
     Dosage: 50 UG/M2 DAILY;
     Route: 058
     Dates: start: 20170120, end: 20170126
  6. SOLDEM 3A INJECTION [Concomitant]
     Indication: ELECTROLYTE SUBSTITUTION THERAPY
     Route: 065
     Dates: start: 20161201, end: 20170215
  7. ELNEOPA NO.1 INJECTION [Concomitant]
     Indication: EATING DISORDER
     Route: 065
     Dates: start: 20161230, end: 20170110
  8. ELNEOPA NO.2 INJECTION [Concomitant]
     Indication: EATING DISORDER
     Route: 065
     Dates: start: 20170111, end: 20170119
  9. MAGNESIUM OXIDE. [Concomitant]
     Active Substance: MAGNESIUM OXIDE
     Indication: CONSTIPATION
     Dates: start: 20161117, end: 20170604
  10. UNASYN [Concomitant]
     Active Substance: AMPICILLIN SODIUM\SULBACTAM SODIUM
     Indication: OROPHARYNGEAL PAIN
     Dates: start: 20161128, end: 20161130
  11. HACHIAZULE/XYLOCAINE (CONTAINING GLYCERINE) [Concomitant]
     Indication: OROPHARYNGEAL PAIN
     Dates: start: 20161202, end: 20161205
  12. VEEN-D [Concomitant]
     Active Substance: DEXTROSE
     Indication: DEHYDRATION
     Dates: start: 20161206, end: 20170207
  13. PRIMPERAN [Concomitant]
     Active Substance: METOCLOPRAMIDE HYDROCHLORIDE
     Dates: start: 20170105, end: 20170106
  14. ROZEREM [Concomitant]
     Active Substance: RAMELTEON
     Indication: PNEUMONIA
     Dates: start: 20161228, end: 20170109
  15. PRIMPERAN [Concomitant]
     Active Substance: METOCLOPRAMIDE HYDROCHLORIDE
     Indication: PROPHYLAXIS
     Dates: start: 20170112, end: 20170116
  16. ITOPRIDE HYDROCHLORIDE [Concomitant]
     Active Substance: ITOPRIDE HYDROCHLORIDE
     Indication: PROPHYLAXIS
     Dates: start: 20170115, end: 20170604
  17. TAKEPRON [Concomitant]
     Active Substance: LANSOPRAZOLE
     Indication: PROPHYLAXIS
     Dates: start: 20170117, end: 20170120
  18. ASPARA POTASSIUM [Concomitant]
     Active Substance: POTASSIUM ASPARTATE
     Indication: ELECTROLYTE SUBSTITUTION THERAPY
     Dates: start: 20170124, end: 20170126
  19. DICLOFENAC SODIUM. [Concomitant]
     Active Substance: DICLOFENAC SODIUM
     Indication: MYELODYSPLASTIC SYNDROME
     Dates: start: 20170208, end: 20170212
  20. COSPANON [Concomitant]
     Active Substance: FLOPROPIONE
     Indication: PROPHYLAXIS
     Dates: start: 20170209, end: 20170604
  21. FILGRASTIM BS INJ. 150MCG SYRINGE [Suspect]
     Active Substance: FILGRASTIM
     Dosage: 50 UG/M2 DAILY;
     Route: 058
     Dates: start: 20170128, end: 20170128
  22. KCL CORRECTIVE INJECTION [Concomitant]
     Indication: EATING DISORDER
     Route: 065
     Dates: start: 20161219, end: 20171125
  23. FUROSEMIDE INJECTION [Concomitant]
     Active Substance: FUROSEMIDE
     Indication: OEDEMA
     Route: 065
     Dates: start: 20161225, end: 20170114
  24. PRIMPERAN [Concomitant]
     Active Substance: METOCLOPRAMIDE HYDROCHLORIDE
     Indication: PROPHYLAXIS
     Dates: start: 20161218, end: 20170213
  25. NICARDIPINE HYDROCHLORIDE. [Concomitant]
     Active Substance: NICARDIPINE HYDROCHLORIDE
     Indication: PRODUCT USED FOR UNKNOWN INDICATION
     Dates: start: 20161227, end: 20170112
  26. LEVOFLOXACIN HEMIHYDRATE [Concomitant]
     Active Substance: LEVOFLOXACIN
     Indication: PNEUMONIA
     Dates: start: 20170112, end: 20170125
  27. CLEANAL [Concomitant]
     Active Substance: FUDOSTEINE
     Indication: PNEUMONIA
     Dates: start: 20170113, end: 20170130
  28. PRERAN [Concomitant]
     Active Substance: TRANDOLAPRIL
     Indication: HYPERTENSION
     Dates: start: 20170113, end: 20170219
  29. POLYFUL [Concomitant]
     Active Substance: CALCIUM POLYCARBOPHIL
     Indication: CONSTIPATION
     Dates: start: 20170121, end: 20170205
  30. SODIUM PICOSULFATE HYDRATE SOLUTION (EXCEPT SYRUP) [Concomitant]
     Indication: CONSTIPATION
     Dates: start: 20170321, end: 20170502
  31. HEPARIN NA LOCK [Concomitant]
     Active Substance: HEPARIN SODIUM
     Indication: PROPHYLAXIS
     Dates: start: 20161212, end: 20170130
  32. FILGRASTIM BS INJ. 150MCG SYRINGE [Suspect]
     Active Substance: FILGRASTIM
     Dosage: 50 UG/M2 DAILY;
     Route: 058
     Dates: start: 20170130
  33. BFLUID INJECTION [Concomitant]
     Active Substance: AMINO ACIDS\DEXTROSE\ELECTROLYTES NOS\VITAMINS
     Indication: HYPOPHAGIA
     Route: 065
     Dates: start: 20161208, end: 201612
  34. ACELIO INJECTION [Concomitant]
     Indication: PYREXIA
     Route: 065
     Dates: start: 20161208, end: 20161208
  35. BAKTAR [Concomitant]
     Active Substance: SULFAMETHOXAZOLE\TRIMETHOPRIM
     Indication: PNEUMONIA
     Dates: start: 20161110, end: 20170604
  36. MIYA-BM [Concomitant]
     Active Substance: CLOSTRIDIUM BUTYRICUM SPORES STRAIN M-55
     Indication: CONSTIPATION
     Dates: start: 20161117, end: 20161120
  37. TALION OD [Concomitant]
     Active Substance: BEPOTASTINE BESYLATE
     Indication: ECZEMA
     Dates: start: 20161117, end: 20161207
  38. ZITHROMAC SR [Concomitant]
     Active Substance: AZITHROMYCIN DIHYDRATE
     Indication: OROPHARYNGEAL PAIN
     Dates: start: 20161128, end: 20161128
  39. LECICARBON [Concomitant]
     Active Substance: SODIUM BICARBONATE\SODIUM PHOSPHATE, MONOBASIC
     Indication: CONSTIPATION
     Dates: start: 20161214, end: 20161221
  40. ZOPICLONE [Concomitant]
     Active Substance: ZOPICLONE
     Indication: PNEUMONIA
     Dates: start: 20161214, end: 20161224
  41. BIO-THREE [Concomitant]
     Active Substance: HERBALS
     Indication: CONSTIPATION
     Dates: start: 20170127, end: 20170130
  42. FLORID [Concomitant]
     Active Substance: MICONAZOLE
     Indication: ORAL CANDIDIASIS
     Dates: start: 20170127, end: 20170205
  43. SOSEGON [Concomitant]
     Active Substance: PENTAZOCINE
     Indication: MYELODYSPLASTIC SYNDROME
     Dates: start: 20170208, end: 20170210
  44. FILGRASTIM BS INJ. 150MCG SYRINGE [Suspect]
     Active Substance: FILGRASTIM
     Dosage: 50 UG/M2 DAILY;
     Route: 058
     Dates: start: 20170207, end: 20170214
  45. VIDAZA INJECTION [Concomitant]
     Indication: MYELODYSPLASTIC SYNDROME
     Route: 065
     Dates: start: 20161110, end: 20161118
  46. KIDMIN INJECTION [Concomitant]
     Indication: EATING DISORDER
     Route: 065
     Dates: start: 20161213, end: 20170123
  47. VITAMEDIN INJECTION [Concomitant]
     Indication: EATING DISORDER
     Route: 065
     Dates: start: 20161224, end: 20161229
  48. APHTASOLON OINTMENT [Concomitant]
     Indication: STOMATITIS
     Dates: start: 20161202, end: 20161202
  49. PROSTAL [Concomitant]
     Active Substance: CHLORMADINONE ACETATE
     Indication: BENIGN PROSTATIC HYPERPLASIA
     Dates: start: 20170127, end: 20170604
  50. HICALIQ INJECTION [Concomitant]
     Indication: EATING DISORDER
     Route: 065
     Dates: start: 20161213, end: 20161223
  51. FEXOFENADINE HYDROCHLORIDE. [Concomitant]
     Active Substance: FEXOFENADINE HYDROCHLORIDE
     Indication: PROPHYLAXIS
     Dates: start: 20161104, end: 20161117
  52. AUGMENTIN [Concomitant]
     Active Substance: AMOXICILLIN\CLAVULANATE POTASSIUM
     Indication: OROPHARYNGEAL PAIN
     Dates: start: 20161117, end: 20161128
  53. GLYCERIN. [Concomitant]
     Active Substance: GLYCERIN
     Indication: CONSTIPATION
     Dates: start: 20161210, end: 20170122
  54. FLUCONAZOLE. [Concomitant]
     Active Substance: FLUCONAZOLE
     Indication: PROPHYLAXIS
     Dates: start: 20170123, end: 20170604
  55. MAGNESIUM SULFATE HYDRATE [Concomitant]
     Active Substance: MAGNESIUM SULFATE HEPTAHYDRATE
     Dates: start: 20170124, end: 20170126
  56. FUROSEMIDE. [Concomitant]
     Active Substance: FUROSEMIDE
     Indication: OEDEMA
     Dates: start: 20170221, end: 20170604
  57. FILGRASTIM BS INJ. 150MCG SYRINGE [Suspect]
     Active Substance: FILGRASTIM
     Indication: MYELODYSPLASTIC SYNDROME
     Dosage: 100 UG/M2 DAILY;
     Route: 058
     Dates: start: 20170116, end: 20170119
  58. SOLYUGEN F INJECTION [Concomitant]
     Indication: METABOLIC ACIDOSIS
     Route: 065
     Dates: start: 20161201, end: 20161206
  59. MEROPENEM HYDRATE INJECTION [Concomitant]
     Indication: PROPHYLAXIS
     Route: 065
     Dates: start: 20161205, end: 20161216
  60. ASTOMIN [Concomitant]
     Active Substance: DIMEMORFAN
     Indication: PNEUMONIA
     Dates: start: 20161203, end: 20161207
  61. SOLDEM 1 [Concomitant]
     Active Substance: DEXTROSE\SODIUM CHLORIDE\SODIUM LACTATE
     Dates: start: 20161208, end: 20170117
  62. HOKUNALIN:TAPE [Concomitant]
     Active Substance: TULOBUTEROL
     Indication: PNEUMONIA
     Dates: start: 20161225, end: 20170117
  63. QUETIAPINE. [Concomitant]
     Active Substance: QUETIAPINE
     Indication: PNEUMONIA
     Dates: start: 20161228, end: 20170102
  64. ERYTHROCIN [Concomitant]
     Active Substance: ERYTHROMYCIN LACTOBIONATE
     Indication: PNEUMONIA
     Dates: start: 20170107, end: 20170213
  65. TRIMEBUTINE MALEATE [Concomitant]
     Active Substance: TRIMEBUTINE MALEATE
     Indication: PROPHYLAXIS
     Dates: start: 20170113, end: 20170205
  66. WYSTAL [Concomitant]
     Active Substance: CEFOPERAZONE SODIUM\SULBACTAM SODIUM
     Indication: PNEUMONIA
     Dates: start: 20170207, end: 20170215
  67. FILGRASTIM BS INJ. 150MCG SYRINGE [Suspect]
     Active Substance: FILGRASTIM
     Indication: INFANTILE GENETIC AGRANULOCYTOSIS
     Dosage: 100 UG/M2 DAILY;
     Route: 058
     Dates: start: 20161205, end: 20170111
  68. ALOXI INJECTION [Concomitant]
     Indication: PROPHYLAXIS
     Route: 065
     Dates: start: 20161110, end: 20161110
  69. ZOSYN INJECTION [Concomitant]
     Indication: PNEUMONIA
     Route: 065
     Dates: start: 20161201, end: 20161205
  70. VITAJECT INJECTION [Concomitant]
     Indication: EATING DISORDER
     Route: 065
     Dates: start: 20161213, end: 20161221
  71. TRANEXAMIC ACID C [Concomitant]
     Active Substance: TRANEXAMIC ACID
     Indication: OROPHARYNGEAL PAIN
     Dates: start: 20161128, end: 20161130
  72. CALONAL [Concomitant]
     Active Substance: ACETAMINOPHEN
     Indication: OROPHARYNGEAL PAIN
     Dates: start: 20161202, end: 20161202
  73. KETOPROFEN TAPE [Concomitant]
     Indication: BACK PAIN
     Dates: start: 20170102, end: 20170102
  74. AMLODIPINE [Concomitant]
     Active Substance: AMLODIPINE BESYLATE
     Indication: HYPERTENSION
     Dates: start: 20170116, end: 20170219
  75. FUNGIZONE [Concomitant]
     Active Substance: AMPHOTERICIN B
     Indication: PNEUMONIA
     Dates: start: 20170123, end: 20170128
  76. TAMSULOSIN HYDROCHLORIDE. [Concomitant]
     Active Substance: TAMSULOSIN HYDROCHLORIDE
     Indication: BENIGN PROSTATIC HYPERPLASIA
     Dates: start: 20170127, end: 20170604
  77. LACTEC [Concomitant]
     Active Substance: CALCIUM CHLORIDE ANHYDROUS\POTASSIUM CHLORIDE\SODIUM CHLORIDE\SODIUM LACTATE
     Indication: METABOLIC ACIDOSIS
     Dates: start: 20170208, end: 20170210
  78. GABEXATE MESILATE [Concomitant]
     Active Substance: GABEXATE MESYLATE
     Indication: PROPHYLAXIS
     Dates: start: 20170208, end: 20170212
  79. TAKECAB [Concomitant]
     Active Substance: VONOPRAZAN FUMURATE
     Indication: PROPHYLAXIS
     Dates: start: 20170213, end: 20170604
  80. GLUCOSE INJECTION [Concomitant]
     Active Substance: DEXTROSE
     Indication: EATING DISORDER
     Route: 065
     Dates: start: 20161219, end: 20170110
  81. CEFTRIAXONE SODIUM HYDRATE INJECTION [Concomitant]
     Indication: PNEUMONIA
     Route: 065
     Dates: start: 20161224, end: 20161229
  82. MINOCYCLINE HYDROCHLORIDE INJECTION [Concomitant]
     Indication: PNEUMONIA
     Route: 065
     Dates: start: 20161229, end: 20170111
  83. KIPRES [Concomitant]
     Active Substance: MONTELUKAST SODIUM
     Indication: ASTHMA
     Dates: start: 20161101, end: 20161103
  84. CIPROFLOXACIN. [Concomitant]
     Active Substance: CIPROFLOXACIN
     Indication: PROPHYLAXIS
     Dates: start: 20161101, end: 20170205
  85. OLMETEC [Concomitant]
     Active Substance: OLMESARTAN MEDOXOMIL
     Indication: PNEUMONIA
     Dates: start: 20161229, end: 20170109
  86. NAUZELIN [Concomitant]
     Active Substance: DOMPERIDONE
     Indication: PROPHYLAXIS
     Dates: start: 20170117, end: 20170123

REACTIONS (2)
  - Schizophrenia [Recovering/Resolving]
  - Acute kidney injury [Recovering/Resolving]

NARRATIVE: CASE EVENT DATE: 20161210
